FAERS Safety Report 8429698-8 (Version None)
Quarter: 2012Q2

REPORT INFORMATION
  Report Type: 
  Country: None (occurrence: None)
  Receive Date: 20120521
  Receipt Date: 20110730
  Transmission Date: 20120825
  Serious: Yes (Other)
  Sender: FDA-Public Use
  Company Number: 2011029047

PATIENT
  Sex: Female

DRUGS (4)
  1. HIZENTRA [Suspect]
  2. HIZENTRA [Suspect]
     Indication: IMMUNODEFICIENCY COMMON VARIABLE
     Dosage: 83 ML 1X/WEEK, 2 HOURS IN 8 SITES SUBCUTANEOUS), (83 ML LX/WEEK, INFUSED VIA 8 SITES IN LEGS, STOMAC
     Route: 058
     Dates: start: 20110301
  3. HIZENTRA [Suspect]
     Indication: IMMUNODEFICIENCY COMMON VARIABLE
     Dosage: 83 ML 1X/WEEK, 2 HOURS IN 8 SITES SUBCUTANEOUS), (83 ML LX/WEEK, INFUSED VIA 8 SITES IN LEGS, STOMAC
     Route: 058
     Dates: start: 20110501
  4. HIZENTRA [Suspect]
     Indication: IMMUNODEFICIENCY COMMON VARIABLE
     Dosage: 83 ML 1X/WEEK, 2 HOURS IN 8 SITES SUBCUTANEOUS), (83 ML LX/WEEK, INFUSED VIA 8 SITES IN LEGS, STOMAC
     Route: 058
     Dates: start: 20110614

REACTIONS (16)
  - LETHARGY [None]
  - PAIN IN EXTREMITY [None]
  - HEADACHE [None]
  - NAUSEA [None]
  - MALAISE [None]
  - URINARY RETENTION [None]
  - CHEST DISCOMFORT [None]
  - ASTHENIA [None]
  - BACK PAIN [None]
  - OEDEMA PERIPHERAL [None]
  - DYSPNOEA [None]
  - FEELING ABNORMAL [None]
  - NON-CARDIAC CHEST PAIN [None]
  - SOMNOLENCE [None]
  - DYSURIA [None]
  - INFUSION RELATED REACTION [None]
